FAERS Safety Report 8918824 (Version 1)
Quarter: 2012Q4

REPORT INFORMATION
  Report Type: Spontaneous
  Country: US (occurrence: None)
  Receive Date: 20121115
  Receipt Date: 20121115
  Transmission Date: 20130627
  Serious: Yes (Other)
  Sender: FDA-Public Use
  Company Number: None

PATIENT
  Age: 27 Year
  Sex: Male
  Weight: 117.94 kg

DRUGS (1)
  1. TOPAMAX [Suspect]
     Indication: FEBRILE SEIZURE
     Route: 048
     Dates: start: 20080806, end: 20101205

REACTIONS (13)
  - Paraesthesia [None]
  - Anxiety [None]
  - Depression [None]
  - Paranoia [None]
  - Loss of libido [None]
  - Blood testosterone decreased [None]
  - Gynaecomastia [None]
  - Homeless [None]
  - Loss of employment [None]
  - Psychotic disorder [None]
  - Suicidal ideation [None]
  - Homicidal ideation [None]
  - Feeling abnormal [None]
